FAERS Safety Report 6727201-1 (Version None)
Quarter: 2010Q2

REPORT INFORMATION
  Report Type: 
  Country: None (occurrence: None)
  Receive Date: 20100512
  Receipt Date: 20100121
  Transmission Date: 20101027
  Serious: No
  Sender: FDA-Public Use
  Company Number: 1000011411

PATIENT
  Age: 57 Year
  Sex: Female

DRUGS (12)
  1. SAVELLA [Suspect]
     Indication: PAIN
     Dosage: 12.5 MG (12.5 MG,1 IN 1 D),ORAL;25 MG (12.5 MG,2 IN 1 D),ORAL;50 MG (25 MG,2 IN 1 D),ORAL
     Route: 048
     Dates: start: 20100108, end: 20100108
  2. SAVELLA [Suspect]
     Indication: PAIN
     Dosage: 12.5 MG (12.5 MG,1 IN 1 D),ORAL;25 MG (12.5 MG,2 IN 1 D),ORAL;50 MG (25 MG,2 IN 1 D),ORAL
     Route: 048
     Dates: start: 20100109, end: 20100110
  3. SAVELLA [Suspect]
     Indication: PAIN
     Dosage: 12.5 MG (12.5 MG,1 IN 1 D),ORAL;25 MG (12.5 MG,2 IN 1 D),ORAL;50 MG (25 MG,2 IN 1 D),ORAL
     Route: 048
     Dates: start: 20100111, end: 20100114
  4. SAVELLA [Suspect]
     Indication: PAIN
     Dosage: 50 MG (50 MG,2 IN 1 D),ORAL
     Route: 048
     Dates: start: 20100115, end: 20100119
  5. SINGULAIR [Concomitant]
  6. ASPIRIN [Concomitant]
  7. DIOVAN [Concomitant]
  8. NEXIUM [Concomitant]
  9. ADVAIR DISKUS 100/50 [Concomitant]
  10. FLONASE [Concomitant]
  11. LEVOXYL [Concomitant]
  12. XANAX [Concomitant]

REACTIONS (6)
  - ANXIETY [None]
  - CRYING [None]
  - DIZZINESS [None]
  - FLUSHING [None]
  - HEADACHE [None]
  - PALPITATIONS [None]
